FAERS Safety Report 12537471 (Version 3)
Quarter: 2016Q3

REPORT INFORMATION
  Report Type: Spontaneous
  Country: GB (occurrence: GB)
  Receive Date: 20160707
  Receipt Date: 20160927
  Transmission Date: 20161109
  Serious: Yes (Other)
  Sender: FDA-Public Use
  Company Number: GB-BIOGEN-2015BI001862

PATIENT
  Age: 36 Year
  Sex: Male

DRUGS (1)
  1. TYSABRI [Suspect]
     Active Substance: NATALIZUMAB
     Indication: RELAPSING-REMITTING MULTIPLE SCLEROSIS
     Route: 042
     Dates: start: 201006, end: 201412

REACTIONS (6)
  - Loss of libido [Unknown]
  - Progressive multifocal leukoencephalopathy [Recovered/Resolved]
  - Fatigue [Unknown]
  - Immune reconstitution inflammatory syndrome [Recovered/Resolved]
  - Depression [Unknown]
  - Multiple sclerosis relapse [Unknown]

NARRATIVE: CASE EVENT DATE: 201406
